FAERS Safety Report 13214315 (Version 2)
Quarter: 2017Q1

REPORT INFORMATION
  Report Type: Spontaneous
  Country: US (occurrence: US)
  Receive Date: 20170210
  Receipt Date: 20170313
  Transmission Date: 20170428
  Serious: No
  Sender: FDA-Public Use
  Company Number: US-LUNDBECK-DKLU2025573

PATIENT
  Age: 77 Year
  Sex: Female

DRUGS (2)
  1. NORTHERA [Suspect]
     Active Substance: DROXIDOPA
     Indication: PRODUCT USED FOR UNKNOWN INDICATION
     Dosage: TITRATION SCHEDULE B (TITRATION COMPLETE)
     Route: 065
     Dates: start: 20170119
  2. NORTHERA [Suspect]
     Active Substance: DROXIDOPA
     Route: 065
     Dates: start: 2017

REACTIONS (5)
  - Pallor [Unknown]
  - Blood pressure fluctuation [Unknown]
  - Blood pressure increased [Unknown]
  - Dizziness [Unknown]
  - Hypotension [Unknown]

NARRATIVE: CASE EVENT DATE: 20170123
